FAERS Safety Report 9153336 (Version 1)
Quarter: 2013Q1

REPORT INFORMATION
  Report Type: Spontaneous
  Country: US (occurrence: US)
  Receive Date: 20130311
  Receipt Date: 20130311
  Transmission Date: 20140127
  Serious: No
  Sender: FDA-Public Use
  Company Number: US-BIOGENIDEC-2013BI021944

PATIENT
  Age: 49 Year
  Sex: Male

DRUGS (3)
  1. TYSABRI [Suspect]
     Indication: MULTIPLE SCLEROSIS
     Route: 042
     Dates: start: 20120430
  2. ALEVE [Concomitant]
     Indication: BACK PAIN
  3. CYMBALTA [Concomitant]
     Indication: BACK PAIN

REACTIONS (3)
  - Weight increased [Not Recovered/Not Resolved]
  - Exostosis [Not Recovered/Not Resolved]
  - Multiple sclerosis relapse [Recovered/Resolved]
